FAERS Safety Report 7472153-2 (Version None)
Quarter: 2011Q2

REPORT INFORMATION
  Report Type: 
  Country: None (occurrence: None)
  Receive Date: 20110511
  Receipt Date: 20110128
  Transmission Date: 20111010
  Serious: No
  Sender: FDA-Public Use
  Company Number: A0910713A

PATIENT
  Sex: Female

DRUGS (2)
  1. TYKERB [Suspect]
     Route: 048
  2. XELODA [Suspect]
     Route: 065

REACTIONS (2)
  - DRY SKIN [None]
  - SKIN DISCOLOURATION [None]
